FAERS Safety Report 4502611-1 (Version None)
Quarter: 2004Q4

REPORT INFORMATION
  Report Type: 
  Country: None (occurrence: None)
  Receive Date: 20041110
  Receipt Date: 20041105
  Transmission Date: 20050328
  Serious: Yes (Death, Hospitalization)
  Sender: FDA-Public Use
  Company Number: F01200403262

PATIENT
  Age: 79 Year
  Sex: Male

DRUGS (3)
  1. (OXALIPLATIN) - SOLUTION - 223 MG [Suspect]
     Indication: COLORECTAL CANCER METASTATIC
     Dosage: 223 MG Q3W, INTRAVENOUS NOS
     Route: 042
     Dates: start: 20040928, end: 20040928
  2. (CAPECITABINE) - TABLET - 1800 MG [Suspect]
     Dosage: 1800 MG TWICE DAILY FROM D1 TO D14 ORAL
     Route: 048
     Dates: start: 20040928, end: 20041012
  3. (BEVACIZUMAB OR PLACEBO) - SOLUTION - 1 UNIT [Suspect]
     Dosage: 1 UNIT Q3W, INTRAVENOUS NOS
     Route: 042
     Dates: start: 20040928, end: 20040928

REACTIONS (5)
  - ACUTE PRERENAL FAILURE [None]
  - AGITATION [None]
  - DIARRHOEA [None]
  - MUCOSAL INFLAMMATION [None]
  - PULMONARY EMBOLISM [None]
